FAERS Safety Report 4491343-4 (Version None)
Quarter: 2004Q4

REPORT INFORMATION
  Report Type: 
  Country: None (occurrence: None)
  Receive Date: 20041029
  Receipt Date: 20041025
  Transmission Date: 20050328
  Serious: Yes (Other)
  Sender: FDA-Public Use
  Company Number: KII-2001-0000517

PATIENT
  Age: 71 Year

DRUGS (2)
  1. OXYCONTIN [Suspect]
     Dosage: 10 MG, Q12H
  2. MS CONTIN [Suspect]
     Dosage: 10 MG, Q12H

REACTIONS (3)
  - ABNORMAL BEHAVIOUR [None]
  - MENINGITIS [None]
  - SOMNOLENCE [None]
